FAERS Safety Report 6906431-X (Version None)
Quarter: 2010Q3

REPORT INFORMATION
  Report Type: 
  Country: None (occurrence: None)
  Receive Date: 20100804
  Receipt Date: 20100729
  Transmission Date: 20110219
  Serious: Yes (Life-Threatening, Hospitalization)
  Sender: FDA-Public Use
  Company Number: B0667469A

PATIENT
  Sex: Male

DRUGS (2)
  1. AMOXICILLIN [Suspect]
     Indication: UPPER RESPIRATORY TRACT INFECTION
     Dosage: 1UNIT SINGLE DOSE
     Route: 048
     Dates: start: 20100101, end: 20100101
  2. IBUPROFEN [Suspect]
     Indication: UPPER RESPIRATORY TRACT INFECTION
     Route: 048
     Dates: start: 20100101, end: 20100101

REACTIONS (7)
  - ANAPHYLACTIC REACTION [None]
  - ASTHENIA [None]
  - BURNING SENSATION [None]
  - CIRCULATORY COLLAPSE [None]
  - DRUG HYPERSENSITIVITY [None]
  - ERYTHEMA [None]
  - MALAISE [None]
